FAERS Safety Report 21447674 (Version 1)
Quarter: 2022Q4

REPORT INFORMATION
  Report Type: Spontaneous
  Country: CN (occurrence: CN)
  Receive Date: 20221012
  Receipt Date: 20221012
  Transmission Date: 20230113
  Serious: Yes (Other)
  Sender: FDA-Public Use
  Company Number: CN-PFIZER INC-PV202200078771

PATIENT
  Age: 43 Year
  Sex: Male
  Weight: 68 kg

DRUGS (2)
  1. AZITHROMYCIN [Suspect]
     Active Substance: AZITHROMYCIN
     Indication: Skin infection
     Dosage: 0.5 G, 1X/DAY
     Route: 041
     Dates: start: 20220925, end: 20220925
  2. DEXTROSE [Concomitant]
     Active Substance: DEXTROSE
     Indication: Vehicle solution use
     Dosage: 250 ML, 1X/DAY
     Route: 041
     Dates: start: 20220925, end: 20220925

REACTIONS (4)
  - Injection site pain [Recovering/Resolving]
  - Abdominal discomfort [Recovering/Resolving]
  - Hyperhidrosis [Recovering/Resolving]
  - Body temperature increased [Recovering/Resolving]

NARRATIVE: CASE EVENT DATE: 20220925
